FAERS Safety Report 9916276 (Version 1)
Quarter: 2014Q1

REPORT INFORMATION
  Report Type: Spontaneous
  Country: AU (occurrence: AU)
  Receive Date: 20140221
  Receipt Date: 20140221
  Transmission Date: 20141002
  Serious: Yes (Disabling)
  Sender: FDA-Public Use
  Company Number: AU-JNJFOC-20140208964

PATIENT
  Age: 74 Year
  Sex: Female

DRUGS (5)
  1. RISPERDAL [Suspect]
     Indication: BEHAVIOURAL AND PSYCHIATRIC SYMPTOMS OF DEMENTIA
     Route: 048
     Dates: start: 20140204, end: 20140213
  2. RISPERDAL [Suspect]
     Indication: BEHAVIOURAL AND PSYCHIATRIC SYMPTOMS OF DEMENTIA
     Route: 048
     Dates: start: 20130724, end: 20140203
  3. MIRTAZAPINE [Concomitant]
     Indication: DEPRESSION
     Route: 065
     Dates: start: 20130423, end: 20140213
  4. ESCITALOPRAM [Concomitant]
     Indication: DEPRESSION
     Route: 048
     Dates: start: 20130614, end: 20140213
  5. DIAZEPAM [Concomitant]
     Route: 065
     Dates: start: 20130617, end: 20140213

REACTIONS (6)
  - Sedation [Recovering/Resolving]
  - General physical health deterioration [Recovering/Resolving]
  - Tremor [Not Recovered/Not Resolved]
  - Somnolence [Unknown]
  - Drooling [Unknown]
  - Mobility decreased [Unknown]
